FAERS Safety Report 6610986-2 (Version None)
Quarter: 2010Q1

REPORT INFORMATION
  Report Type: 
  Country: None (occurrence: None)
  Receive Date: 20100302
  Receipt Date: 20100226
  Transmission Date: 20100710
  Serious: Yes (Hospitalization)
  Sender: FDA-Public Use
  Company Number: IT-BRISTOL-MYERS SQUIBB COMPANY-14946909

PATIENT
  Age: 76 Year
  Sex: Male

DRUGS (2)
  1. COUMADIN [Suspect]
     Route: 048
     Dates: end: 20091218
  2. LANOXIN [Concomitant]
     Route: 048

REACTIONS (4)
  - ABDOMINAL PAIN [None]
  - ANAEMIA [None]
  - HAEMATURIA [None]
  - HETEROPLASIA [None]
